FAERS Safety Report 10177072 (Version 1)
Quarter: 2014Q2

REPORT INFORMATION
  Report Type: Spontaneous
  Country: US (occurrence: None)
  Receive Date: 20140515
  Receipt Date: 20140515
  Transmission Date: 20141212
  Serious: Yes (Other)
  Sender: FDA-Public Use
  Company Number: None

PATIENT
  Age: 47 Year
  Sex: Female

DRUGS (1)
  1. ENBREL 50MG AMGEN [Suspect]
     Indication: RHEUMATOID ARTHRITIS
     Route: 058
     Dates: start: 20140418, end: 20140512

REACTIONS (6)
  - Injection site urticaria [None]
  - Swelling [None]
  - Dry throat [None]
  - Swollen tongue [None]
  - Injection site reaction [None]
  - Dyspnoea [None]
